FAERS Safety Report 16693556 (Version 1)
Quarter: 2019Q3

REPORT INFORMATION
  Report Type: Report from Study
  Country: None (occurrence: DE)
  Receive Date: 20190812
  Receipt Date: 20190812
  Transmission Date: 20191004
  Serious: Yes (Death, Hospitalization)
  Sender: FDA-Public Use
  Company Number: DE-ABBVIE-19K-062-2885610-00

PATIENT
  Age: 85 Year
  Sex: Male

DRUGS (1)
  1. DUODOPA [Suspect]
     Active Substance: CARBIDOPA\LEVODOPA
     Indication: PARKINSON^S DISEASE
     Dosage: MD 5 ML CRD 5 ML/HR CRN 3 ML/HR ED 2.5 ML?STRENGTH:- 20 MG/ML, 5 MG/ML
     Route: 050
     Dates: start: 20180214

REACTIONS (1)
  - Death [Fatal]

NARRATIVE: CASE EVENT DATE: 20190809
